FAERS Safety Report 15821425 (Version 1)
Quarter: 2019Q1

REPORT INFORMATION
  Report Type: Spontaneous
  Country: US (occurrence: US)
  Receive Date: 20190112
  Receipt Date: 20190112
  Transmission Date: 20190417
  Serious: Yes (Disabling)
  Sender: FDA-Public Use
  Company Number: None

PATIENT
  Age: 63 Year
  Sex: Female
  Weight: 54.9 kg

DRUGS (1)
  1. OCEAN SALINE NASAL SPRAY [Suspect]
     Active Substance: SODIUM CHLORIDE
     Indication: HYPERSENSITIVITY
     Route: 055
     Dates: start: 20180930, end: 20180930

REACTIONS (3)
  - Product odour abnormal [None]
  - Recalled product administered [None]
  - Pseudomonas infection [None]

NARRATIVE: CASE EVENT DATE: 20181012
